FAERS Safety Report 7403051-8 (Version None)
Quarter: 2011Q2

REPORT INFORMATION
  Report Type: 
  Country: None (occurrence: None)
  Receive Date: 20110408
  Receipt Date: 20110408
  Transmission Date: 20111010
  Serious: Yes (Other)
  Sender: FDA-Public Use
  Company Number: GB-ABBOTT-08P-167-0461213-00

PATIENT
  Age: 41 Year
  Sex: Female
  Weight: 92 kg

DRUGS (2)
  1. ERYTHROMYCIN [Suspect]
     Indication: FURUNCLE
     Route: 048
     Dates: start: 20080307, end: 20080309
  2. SIBUTRAMINE HYDROCHLORIDE MONOHYDRATE [Suspect]
     Indication: PRODUCT USED FOR UNKNOWN INDICATION
     Route: 048
     Dates: start: 20080307, end: 20080309

REACTIONS (2)
  - DIARRHOEA [None]
  - ABDOMINAL PAIN UPPER [None]
